FAERS Safety Report 14700448 (Version 2)
Quarter: 2018Q2

REPORT INFORMATION
  Report Type: Spontaneous
  Country: US (occurrence: US)
  Receive Date: 20180330
  Receipt Date: 20180417
  Transmission Date: 20180711
  Serious: Yes (Hospitalization, Other)
  Sender: FDA-Public Use
  Company Number: US-ASTRAZENECA-2018SE39967

PATIENT
  Sex: Female

DRUGS (1)
  1. FARXIGA [Suspect]
     Active Substance: DAPAGLIFLOZIN PROPANEDIOL
     Route: 048

REACTIONS (6)
  - Pollakiuria [Unknown]
  - Blood glucose increased [Unknown]
  - Gastrointestinal fungal infection [Unknown]
  - Hunger [Unknown]
  - Fungal infection [Unknown]
  - Liver disorder [Unknown]
